FAERS Safety Report 9837974 (Version 2)
Quarter: 2014Q1

REPORT INFORMATION
  Report Type: Not Available
  Country: FR (occurrence: FR)
  Receive Date: 20140123
  Receipt Date: 20140131
  Transmission Date: 20141002
  Serious: Yes (Other)
  Sender: FDA-Public Use
  Company Number: FR-BEH-2014040307

PATIENT
  Sex: Male

DRUGS (1)
  1. PRIVIGEN [Suspect]
     Indication: IMMUNODEFICIENCY
     Dosage: 0.4 G/KG (30 G BY COURSE) FROM ??-NOV-2012 TO ??-AUG-2013
     Route: 042

REACTIONS (7)
  - Infection [Unknown]
  - Sinusitis [Unknown]
  - Arthralgia [Recovered/Resolved]
  - Fatigue [Recovered/Resolved]
  - Headache [Recovered/Resolved]
  - Product measured potency issue [Unknown]
  - Product substitution issue [Recovered/Resolved]
